FAERS Safety Report 19648006 (Version 12)
Quarter: 2023Q1

REPORT INFORMATION
  Report Type: Report from Study
  Country: DE (occurrence: DE)
  Receive Date: 20210802
  Receipt Date: 20230316
  Transmission Date: 20230418
  Serious: Yes (Life-Threatening, Other)
  Sender: FDA-Public Use
  Company Number: DE-002147023-NVSC2020DE118864

PATIENT
  Sex: Female
  Weight: 69 kg

DRUGS (16)
  1. LETROZOLE [Suspect]
     Active Substance: LETROZOLE
     Indication: Breast cancer metastatic
     Dosage: 2.5 MILLIGRAM, QD, START DATE: 17-SEP-2019
     Route: 048
  2. LETROZOLE [Suspect]
     Active Substance: LETROZOLE
     Dosage: 2.5 MILLIGRAM, QD, START DATE: 11-DEC-2019
     Route: 048
     Dates: start: 20191211
  3. KISQALI [Suspect]
     Active Substance: RIBOCICLIB
     Indication: Breast cancer metastatic
     Dosage: SCHEMA 21 DAYS INTAKE,7 DAYS PAUSE)
     Route: 048
     Dates: start: 20191211, end: 20200310
  4. KISQALI [Suspect]
     Active Substance: RIBOCICLIB
     Dosage: 400 MILLIGRAM, QDSCHEMA 21 DAYS INTAKE, 7 DAYS
     Route: 048
     Dates: start: 20200616, end: 20200713
  5. KISQALI [Suspect]
     Active Substance: RIBOCICLIB
     Dosage: 21DAYS INTAKE, 7DAYS PAUSE
     Route: 048
     Dates: start: 20200721, end: 20200816
  6. KISQALI [Suspect]
     Active Substance: RIBOCICLIB
     Dosage: SCHEMA 21 DAYS INTAKE, 7 DAYS)
     Route: 048
     Dates: start: 20200317, end: 20200608
  7. KISQALI [Suspect]
     Active Substance: RIBOCICLIB
     Dosage: 21 DAYS INTAKE, 7 DAYS PAUSE
     Route: 048
     Dates: start: 20200824, end: 20220628
  8. KISQALI [Suspect]
     Active Substance: RIBOCICLIB
     Dosage: 21DAYS INTAKE,7DAYS PAUSE,START DATE14-JAN-2020
     Route: 048
     Dates: end: 20200203
  9. KISQALI [Suspect]
     Active Substance: RIBOCICLIB
     Dosage: SCHEMA 21D INTAKE,7D PAUSE, START:11-FEB-2020
     Route: 048
     Dates: end: 20200330
  10. KISQALI [Suspect]
     Active Substance: RIBOCICLIB
     Dosage: SCHEMA 21 DAYS INTAKE,7 DAYS PAUSE, 19-NOV-2019
     Route: 048
     Dates: end: 20191209
  11. KISQALI [Suspect]
     Active Substance: RIBOCICLIB
     Dosage: SCHEMA 21 DAYS INTAKE,7 DAYS PAUSE,17-SEP-2019
     Route: 048
  12. KISQALI [Suspect]
     Active Substance: RIBOCICLIB
     Dosage: SCHEMA 21D INTAKE,7D PAUSE,START:17-APR-2020
     Route: 048
     Dates: end: 20200604
  13. KISQALI [Suspect]
     Active Substance: RIBOCICLIB
     Dosage: SCHEMA 21 DAYS INTAKE,7 DAYS PAUSE, 18-JUN-2020
     Route: 048
  14. KISQALI [Suspect]
     Active Substance: RIBOCICLIB
     Dosage: SCHEMA 21D INTAKE,7 DAYS PAUSE, 17-DEC-2019
     Route: 048
     Dates: end: 20200106
  15. KISQALI [Suspect]
     Active Substance: RIBOCICLIB
     Dosage: SCHEMA 21 DAYS INTAKE,7 DAYS PAUSE, 15-OCT-2019
     Route: 048
  16. KISQALI [Suspect]
     Active Substance: RIBOCICLIB
     Dosage: SCHEMA 21 DAYS INTAKE, 7 DAYS PAUSE
     Route: 048
     Dates: start: 20220921, end: 20221221

REACTIONS (22)
  - Neutropenia [Not Recovered/Not Resolved]
  - Syncope [Recovered/Resolved]
  - Neutrophil count decreased [Recovered/Resolved]
  - Lacrimation increased [Recovered/Resolved]
  - Tinnitus [Not Recovered/Not Resolved]
  - Dysphagia [Recovering/Resolving]
  - Fall [Recovered/Resolved]
  - Lung disorder [Recovered/Resolved with Sequelae]
  - Back pain [Not Recovered/Not Resolved]
  - Dyspepsia [Unknown]
  - Taste disorder [Unknown]
  - Rash maculo-papular [Recovered/Resolved]
  - Diarrhoea [Recovered/Resolved]
  - Hot flush [Recovered/Resolved]
  - Fatigue [Recovered/Resolved]
  - Myalgia [Recovered/Resolved]
  - Insomnia [Recovered/Resolved]
  - Arthralgia [Recovered/Resolved]
  - Erythema [Recovered/Resolved]
  - Decreased appetite [Not Recovered/Not Resolved]
  - General physical health deterioration [Not Recovered/Not Resolved]
  - Muscular weakness [Unknown]

NARRATIVE: CASE EVENT DATE: 20200202
